FAERS Safety Report 24218046 (Version 2)
Quarter: 2024Q4

REPORT INFORMATION
  Report Type: Spontaneous
  Country: US (occurrence: US)
  Receive Date: 20240816
  Receipt Date: 20241003
  Transmission Date: 20250115
  Serious: Yes (Hospitalization)
  Sender: RADIUS PHARM
  Company Number: US-RADIUS HEALTH, INC.-2024US006093

PATIENT
  Age: 79 Year
  Sex: Male

DRUGS (2)
  1. TYMLOS [Suspect]
     Active Substance: ABALOPARATIDE
     Indication: Senile osteoporosis
     Dosage: 80 MICROGRAM, QD
     Route: 058
     Dates: start: 202407
  2. TYMLOS [Suspect]
     Active Substance: ABALOPARATIDE
     Indication: Spinal fracture

REACTIONS (5)
  - Spinal fracture [Unknown]
  - Upper limb fracture [Unknown]
  - Fall [Unknown]
  - Therapy interrupted [Unknown]
  - Dizziness [Recovered/Resolved]

NARRATIVE: CASE EVENT DATE: 20240701
